FAERS Safety Report 5728586-5 (Version None)
Quarter: 2008Q2

REPORT INFORMATION
  Report Type: 
  Country: None (occurrence: None)
  Receive Date: 20080502
  Receipt Date: 20080502
  Transmission Date: 20081010
  Serious: Yes (Life-Threatening)
  Sender: FDA-Public Use
  Company Number: None

PATIENT
  Age: 84 Year
  Sex: Female

DRUGS (1)
  1. DIGOXIN [Suspect]
     Dosage: 1 DAILY PO
     Route: 048

REACTIONS (4)
  - CONFUSIONAL STATE [None]
  - HYPOTENSION [None]
  - NAUSEA [None]
  - VOMITING [None]
